FAERS Safety Report 6791289-2 (Version None)
Quarter: 2010Q2

REPORT INFORMATION
  Report Type: 
  Country: None (occurrence: None)
  Receive Date: 20100624
  Receipt Date: 20100621
  Transmission Date: 20101027
  Serious: Yes (Other)
  Sender: FDA-Public Use
  Company Number: CHPA2010US10384

PATIENT
  Age: 49 Year
  Sex: Female
  Weight: 77.551 kg

DRUGS (1)
  1. PRIVATE LABEL STRENGTH UNKNOWN (NCH) [Suspect]
     Indication: SMOKING CESSATION THERAPY
     Dosage: 1 PATCH ONCE DAILY
     Route: 062
     Dates: start: 20091101, end: 20091101

REACTIONS (2)
  - ASTHMA [None]
  - CHRONIC OBSTRUCTIVE PULMONARY DISEASE [None]
